FAERS Safety Report 9297994 (Version 2)
Quarter: 2013Q2

REPORT INFORMATION
  Report Type: Spontaneous
  Country: US (occurrence: US)
  Receive Date: 20130520
  Receipt Date: 20130605
  Transmission Date: 20140414
  Serious: Yes (Other)
  Sender: FDA-Public Use
  Company Number: US-JNJFOC-20130505606

PATIENT
  Age: 22 Year
  Sex: Male
  Weight: 78.02 kg

DRUGS (4)
  1. INVEGA SUSTENNA [Suspect]
     Indication: SCHIZOPHRENIA
     Route: 030
     Dates: start: 20120521, end: 20121015
  2. PROZAC [Concomitant]
     Route: 065
  3. COGENTIN [Concomitant]
     Route: 065
  4. KLONOPIN [Concomitant]
     Route: 065

REACTIONS (4)
  - Gynaecomastia [Unknown]
  - Mental impairment [Unknown]
  - Weight increased [Unknown]
  - Blunted affect [Unknown]
